FAERS Safety Report 7643132-7 (Version None)
Quarter: 2011Q3

REPORT INFORMATION
  Report Type: 
  Country: None (occurrence: None)
  Receive Date: 20110729
  Receipt Date: 20110721
  Transmission Date: 20111222
  Serious: Yes (Hospitalization)
  Sender: FDA-Public Use
  Company Number: US-BIOGENIDEC-2011BI020929

PATIENT
  Age: 45 Year
  Sex: Female

DRUGS (2)
  1. TYSABRI [Suspect]
     Indication: MULTIPLE SCLEROSIS
     Route: 042
     Dates: start: 20100204, end: 20110511
  2. AMANTADINE HCL [Concomitant]
     Indication: FATIGUE

REACTIONS (3)
  - THALASSAEMIA [None]
  - MULTIPLE SCLEROSIS RELAPSE [None]
  - HEPATIC FAILURE [None]
